FAERS Safety Report 25603539 (Version 2)
Quarter: 2025Q3

REPORT INFORMATION
  Report Type: Spontaneous
  Country: US (occurrence: US)
  Receive Date: 20250724
  Receipt Date: 20250731
  Transmission Date: 20251021
  Serious: Yes (Death)
  Sender: ROCHE
  Company Number: US-ROCHE-10000346125

PATIENT
  Sex: Female

DRUGS (1)
  1. COTELLIC [Suspect]
     Active Substance: COBIMETINIB FUMARATE
     Indication: Product used for unknown indication
     Route: 065

REACTIONS (1)
  - Gastric perforation [Fatal]
